FAERS Safety Report 6163078-3 (Version None)
Quarter: 2009Q2

REPORT INFORMATION
  Report Type: 
  Country: None (occurrence: None)
  Receive Date: 20090422
  Receipt Date: 20090415
  Transmission Date: 20091009
  Serious: Yes (Other)
  Sender: FDA-Public Use
  Company Number: US-BAYER-200838425NA

PATIENT
  Age: 37 Year
  Sex: Female
  Weight: 92 kg

DRUGS (2)
  1. MIRENA [Suspect]
     Indication: CONTRACEPTION
     Route: 015
     Dates: start: 20081110, end: 20081112
  2. MAXALT-MLT [Concomitant]
     Indication: HEADACHE
     Route: 048

REACTIONS (7)
  - APHAGIA [None]
  - DYSAESTHESIA [None]
  - HYPOAESTHESIA FACIAL [None]
  - LOSS OF CONSCIOUSNESS [None]
  - MIGRAINE [None]
  - PHARYNGEAL OEDEMA [None]
  - SYNCOPE [None]
